FAERS Safety Report 23296918 (Version 3)
Quarter: 2024Q2

REPORT INFORMATION
  Report Type: Spontaneous
  Country: US (occurrence: US)
  Receive Date: 20231214
  Receipt Date: 20240604
  Transmission Date: 20240716
  Serious: Yes (Hospitalization)
  Sender: FDA-Public Use
  Company Number: US-SA-SAC20231207001445

PATIENT
  Age: 73 Year
  Sex: Female
  Weight: 48 kg

DRUGS (1)
  1. DUPIXENT [Suspect]
     Active Substance: DUPILUMAB
     Indication: Asthma
     Dosage: 300 MG, QOW
     Route: 058

REACTIONS (8)
  - Hospitalisation [Unknown]
  - Weight decreased [Unknown]
  - Tremor [Unknown]
  - Contusion [Unknown]
  - Pain [Not Recovered/Not Resolved]
  - Fall [Unknown]
  - Skin abrasion [Not Recovered/Not Resolved]
  - Pruritus [Unknown]

NARRATIVE: CASE EVENT DATE: 20230101
